FAERS Safety Report 19777787 (Version 2)
Quarter: 2021Q3

REPORT INFORMATION
  Report Type: Report from Study
  Country: DE (occurrence: DE)
  Receive Date: 20210902
  Receipt Date: 20210920
  Transmission Date: 20211014
  Serious: No
  Sender: FDA-Public Use
  Company Number: DE-ROCHE-2895347

PATIENT
  Age: 50 Year
  Sex: Male
  Weight: 82.6 kg

DRUGS (10)
  1. L?THYROXINE [Concomitant]
     Active Substance: LEVOTHYROXINE
     Indication: HYPOTHYROIDISM
     Route: 048
  2. TRANEXAMIC ACID. [Concomitant]
     Active Substance: TRANEXAMIC ACID
     Route: 048
     Dates: start: 20210428
  3. TRANEXAMIC ACID. [Concomitant]
     Active Substance: TRANEXAMIC ACID
     Route: 048
     Dates: start: 20210526
  4. FACTOR VIII (ANTIHAEMOPHILIC FACTOR) [Concomitant]
     Active Substance: ANTIHEMOPHILIC FACTOR HUMAN
  5. TRANEXAMIC ACID. [Concomitant]
     Active Substance: TRANEXAMIC ACID
     Route: 040
     Dates: start: 20210526
  6. TRANEXAMIC ACID. [Concomitant]
     Active Substance: TRANEXAMIC ACID
     Route: 048
     Dates: start: 20210427
  7. EMICIZUMAB. [Suspect]
     Active Substance: EMICIZUMAB
     Indication: HAEMOPHILIA A WITHOUT INHIBITORS
     Dosage: ON 15/JUL/2021, HE RECEIVED MOST RECENT DOSE OF EMICIZUMAB PRIOR TO ADVERSE EVENT (AE). TOTAL VOLUME
     Route: 058
     Dates: start: 20200820
  8. PYLERA [Concomitant]
     Active Substance: BISMUTH SUBCITRATE POTASSIUM\METRONIDAZOLE\TETRACYCLINE HYDROCHLORIDE
     Indication: GASTRIC ULCER
     Route: 048
     Dates: start: 20210428
  9. COVID?19 VACCINE [Concomitant]
     Route: 030
     Dates: start: 20210713, end: 20210713
  10. PANTOPRAZOLE [Concomitant]
     Active Substance: PANTOPRAZOLE
     Indication: GASTRIC ULCER
     Route: 048
     Dates: start: 20210427

REACTIONS (1)
  - Haemorrhoids thrombosed [Recovered/Resolved]

NARRATIVE: CASE EVENT DATE: 20210720
